FAERS Safety Report 9892559 (Version 4)
Quarter: 2014Q2

REPORT INFORMATION
  Report Type: Spontaneous
  Country: PT (occurrence: PT)
  Receive Date: 20140212
  Receipt Date: 20140404
  Transmission Date: 20141212
  Serious: Yes (Other)
  Sender: FDA-Public Use
  Company Number: PT-BAXTER-2014BAX002935

PATIENT
  Sex: Male
  Weight: 35 kg

DRUGS (5)
  1. ADVATE - 1000 IU/VIAL_POWDER FOR SOLUTION FOR INJECTION_ VIAL, GLASS [Suspect]
     Indication: HAEMOPHILIA
     Route: 042
     Dates: start: 20131226
  2. ADVATE - 1000 IU/VIAL_POWDER FOR SOLUTION FOR INJECTION_ VIAL, GLASS [Suspect]
     Indication: IMMUNE TOLERANCE INDUCTION
     Route: 042
  3. ADVATE - 1000 IU/VIAL_POWDER FOR SOLUTION FOR INJECTION_ VIAL, GLASS [Suspect]
     Indication: OFF LABEL USE
  4. AERIUS [Concomitant]
     Indication: ASTHMA
     Route: 065
  5. FLIXOTAIDE [Concomitant]
     Indication: ASTHMA
     Route: 065

REACTIONS (7)
  - Headache [Recovered/Resolved]
  - Throat tightness [Recovered/Resolved]
  - Chest discomfort [Recovered/Resolved]
  - Abdominal pain [Recovered/Resolved]
  - Fatigue [Recovered/Resolved]
  - Dyspnoea [Recovering/Resolving]
  - Oropharyngeal pain [Recovered/Resolved]
